FAERS Safety Report 21757033 (Version 1)
Quarter: 2022Q4

REPORT INFORMATION
  Report Type: Report from Study
  Country: KR (occurrence: KR)
  Receive Date: 20221220
  Receipt Date: 20221220
  Transmission Date: 20230113
  Serious: Yes (Other)
  Sender: FDA-Public Use
  Company Number: KR-OTSUKA-2020_004394

PATIENT
  Age: 32 Year
  Sex: Male

DRUGS (7)
  1. PONATINIB [Suspect]
     Active Substance: PONATINIB
     Indication: Acute lymphocytic leukaemia
     Dosage: 45 MILLIGRAM, QD
     Route: 048
     Dates: start: 20181130, end: 20181230
  2. PONATINIB [Suspect]
     Active Substance: PONATINIB
     Dosage: 30 MILLIGRAM, QD
     Route: 048
     Dates: start: 20181231, end: 20190129
  3. PONATINIB [Suspect]
     Active Substance: PONATINIB
     Dosage: 45 MILLIGRAM, QD
     Route: 048
     Dates: start: 20190130, end: 20190207
  4. FEBUXOSTAT [Concomitant]
     Active Substance: FEBUXOSTAT
     Indication: Hyperleukocytosis
     Dosage: 40 MG, BID
     Route: 048
     Dates: start: 20180802
  5. CEFACLOR [Concomitant]
     Active Substance: CEFACLOR
     Indication: Haemorrhoid infection
     Dosage: 250 MG, TID
     Route: 048
     Dates: start: 20181109
  6. GASTER [Concomitant]
     Active Substance: FAMOTIDINE
     Indication: Prophylaxis
     Dosage: 20 MG, BID
     Route: 048
  7. NUCYNTA [Concomitant]
     Active Substance: TAPENTADOL HYDROCHLORIDE
     Indication: Haemorrhoid infection
     Dosage: 50 MG, BID
     Route: 048
     Dates: start: 20181105

REACTIONS (1)
  - Enterocolitis infectious [Not Recovered/Not Resolved]

NARRATIVE: CASE EVENT DATE: 20181219
